FAERS Safety Report 9360959 (Version 1)
Quarter: 2013Q2

REPORT INFORMATION
  Report Type: Spontaneous
  Country: US (occurrence: None)
  Receive Date: 20130620
  Receipt Date: 20130620
  Transmission Date: 20140414
  Serious: Yes (Other)
  Sender: FDA-Public Use
  Company Number: None

PATIENT
  Age: 83 Year
  Sex: Female
  Weight: 72.58 kg

DRUGS (1)
  1. URECHOLINE BETHANECHOL [Suspect]
     Route: 048
     Dates: start: 2011, end: 2013

REACTIONS (1)
  - Heart rate decreased [None]
